FAERS Safety Report 20376705 (Version 1)
Quarter: 2022Q1

REPORT INFORMATION
  Report Type: Report from Study
  Country: US (occurrence: US)
  Receive Date: 20220125
  Receipt Date: 20220125
  Transmission Date: 20220424
  Serious: Yes (Other)
  Sender: FDA-Public Use
  Company Number: US-MYLANLABS-2022M1005753

PATIENT
  Age: 67 Year
  Sex: Male
  Weight: 96.61 kg

DRUGS (1)
  1. YUPELRI [Suspect]
     Active Substance: REVEFENACIN
     Indication: Chronic obstructive pulmonary disease
     Dosage: 175 MCG/ML

REACTIONS (2)
  - Atrial fibrillation [Unknown]
  - Tremor [Unknown]
